FAERS Safety Report 4829465-8 (Version None)
Quarter: 2005Q4

REPORT INFORMATION
  Report Type: 
  Country: None (occurrence: None)
  Receive Date: 20051028
  Receipt Date: 20040916
  Transmission Date: 20060501
  Serious: Yes (Hospitalization)
  Sender: FDA-Public Use
  Company Number: US013768

PATIENT
  Age: 32 Year
  Sex: Male
  Weight: 73.0291 kg

DRUGS (3)
  1. MODAFINIL [Suspect]
     Indication: BIPOLAR I DISORDER
     Dosage: 200 MG QD ORAL
     Route: 048
     Dates: start: 20040721, end: 20040811
  2. LITHIUM [Concomitant]
  3. FLUOXETINE [Concomitant]

REACTIONS (1)
  - MANIA [None]
